FAERS Safety Report 4705009-6 (Version None)
Quarter: 2005Q3

REPORT INFORMATION
  Report Type: 
  Country: None (occurrence: None)
  Receive Date: 20050701
  Receipt Date: 20050622
  Transmission Date: 20060218
  Serious: Yes (Death)
  Sender: FDA-Public Use
  Company Number: JP-JNJFOC-20040103395

PATIENT
  Sex: Male
  Weight: 50.9 kg

DRUGS (11)
  1. REMICADE [Suspect]
     Route: 041
  2. REMICADE [Suspect]
     Indication: CROHN'S DISEASE
     Route: 041
  3. PREDONIN [Concomitant]
     Route: 049
  4. PREDONIN [Concomitant]
     Route: 042
  5. SOLU-MEDROL [Concomitant]
     Route: 042
  6. STERONEMA [Concomitant]
     Route: 065
  7. IMURAN [Concomitant]
     Route: 049
  8. FRAGILE [Concomitant]
     Route: 049
  9. PENTASA [Concomitant]
     Route: 049
  10. ENTERAL NUTRITION [Concomitant]
  11. METRONIDAZOLE [Concomitant]
     Route: 065

REACTIONS (4)
  - CROHN'S DISEASE [None]
  - DECREASED IMMUNE RESPONSIVENESS [None]
  - DISEASE PROGRESSION [None]
  - DRUG RESISTANCE [None]
